FAERS Safety Report 8540987-9 (Version None)
Quarter: 2012Q3

REPORT INFORMATION
  Report Type: 
  Country: None (occurrence: None)
  Receive Date: 20120726
  Receipt Date: 20110810
  Transmission Date: 20120928
  Serious: No
  Sender: FDA-Public Use
  Company Number: US-ASTRAZENECA-2011SE47753

PATIENT
  Age: 60 Year
  Sex: Male
  Weight: 95.3 kg

DRUGS (8)
  1. SEROQUEL [Suspect]
     Indication: ANXIETY
     Route: 048
     Dates: start: 20060101
  2. PAROXETINE [Concomitant]
  3. SEROQUEL [Suspect]
     Indication: SLEEP DISORDER
     Route: 048
     Dates: start: 20060101
  4. SEROQUEL [Suspect]
     Route: 048
  5. CLONIPINE [Concomitant]
  6. SEROQUEL [Suspect]
     Route: 048
  7. TEGRETOL [Concomitant]
  8. DILANTIN [Concomitant]

REACTIONS (2)
  - ANXIETY [None]
  - DRUG DOSE OMISSION [None]
